FAERS Safety Report 7359594-9 (Version None)
Quarter: 2011Q1

REPORT INFORMATION
  Report Type: 
  Country: None (occurrence: None)
  Receive Date: 20110317
  Receipt Date: 20100201
  Transmission Date: 20110831
  Serious: No
  Sender: FDA-Public Use
  Company Number: US-PFIZER INC-2010013771

PATIENT
  Age: 72 Year
  Sex: Female

DRUGS (9)
  1. NEBIVOLOL HYDROCHLORIDE [Suspect]
     Indication: HYPERTENSION
     Dosage: 5 MG, 1X/DAY
     Route: 048
     Dates: start: 20100101
  2. DARVOCET [Concomitant]
     Indication: PAIN
     Dosage: UNK. 2X/DAY
     Route: 048
  3. GLUCOPHAGE [Concomitant]
     Indication: DIABETES MELLITUS
     Dosage: 1000 MG, 2X/DAY
     Route: 048
  4. LOTENSIN [Concomitant]
     Indication: HYPERTENSION
     Dosage: UNK, 2X/DAY
     Route: 048
  5. CATAPRES [Concomitant]
     Indication: HYPERTENSION
     Dosage: 5 MG, 2X/DAY
     Route: 048
  6. SYNTHROID [Concomitant]
     Indication: HYPOTHYROIDISM
     Dosage: 150 MCG, 1X/DAY
     Route: 048
  7. AMARYL [Concomitant]
     Indication: DIABETES MELLITUS
     Dosage: 4 MG, 2X/DAY
     Route: 048
  8. NORVASC [Suspect]
     Indication: HYPERTENSION
     Dosage: 5 MG, 1X/DAY
     Route: 048
  9. FLEXERIL [Concomitant]
     Indication: PAIN
     Dosage: 10 MG, 2X/DAY
     Route: 048

REACTIONS (6)
  - HEADACHE [None]
  - BLOOD GLUCOSE INCREASED [None]
  - FATIGUE [None]
  - BLOOD PRESSURE INCREASED [None]
  - OEDEMA PERIPHERAL [None]
  - HEART RATE INCREASED [None]
